FAERS Safety Report 12683434 (Version 1)
Quarter: 2016Q3

REPORT INFORMATION
  Report Type: Spontaneous
  Country: US (occurrence: US)
  Receive Date: 20160825
  Receipt Date: 20160825
  Transmission Date: 20161109
  Serious: No
  Sender: FDA-Public Use
  Company Number: US-PFIZER INC-2016400501

PATIENT
  Age: 48 Year
  Sex: Female

DRUGS (3)
  1. GABAPENTIN. [Suspect]
     Active Substance: GABAPENTIN
     Dosage: 300MG AT BEDTIME FOR 5 DAYS
     Dates: start: 2015
  2. GABAPENTIN. [Suspect]
     Active Substance: GABAPENTIN
     Dosage: 300 MG, 3X/DAY
     Dates: start: 2015
  3. TOPIRAMATE. [Suspect]
     Active Substance: TOPIRAMATE
     Dosage: 100 MG,  FOUR 25MG TABLETS AT BEDTIME
     Dates: start: 201602

REACTIONS (1)
  - Drug ineffective [Unknown]
